FAERS Safety Report 6016692-X (Version None)
Quarter: 2008Q4

REPORT INFORMATION
  Report Type: 
  Country: None (occurrence: None)
  Receive Date: 20081218
  Receipt Date: 20081209
  Transmission Date: 20090506
  Serious: Yes (Other)
  Sender: FDA-Public Use
  Company Number: 100#08#2008-06194

PATIENT
  Age: 59 Year
  Sex: Female

DRUGS (6)
  1. OXALIPLATIN [Suspect]
     Indication: COLORECTAL CANCER
     Dosage: 100 MG/M2 OVER 2 H 3 CYCLES
     Route: 042
  2. OXALIPLATIN [Suspect]
     Indication: METASTASES TO PERITONEUM
     Dosage: 100 MG/M2 OVER 2 H 3 CYCLES
     Route: 042
  3. FLUOROURACIL [Suspect]
     Indication: COLORECTAL CANCER
     Dosage: SEE IMAGE
     Route: 040
  4. FLUOROURACIL [Suspect]
     Indication: METASTASES TO PERITONEUM
     Dosage: SEE IMAGE
     Route: 040
  5. FOLONIC ACID (CALCIUM FOLINATE) [Suspect]
     Indication: COLORECTAL CANCER
     Dosage: 200MG/M2 ONDAY 1 X 3 CYCLES
     Route: 042
  6. FOLONIC ACID (CALCIUM FOLINATE) [Suspect]
     Indication: METASTASES TO PERITONEUM
     Dosage: 200MG/M2 ONDAY 1 X 3 CYCLES
     Route: 042

REACTIONS (23)
  - AREFLEXIA [None]
  - COMA [None]
  - DIARRHOEA [None]
  - DIPLOPIA [None]
  - DYSARTHRIA [None]
  - ELECTROCARDIOGRAM REPOLARISATION ABNORMALITY [None]
  - ELECTROCARDIOGRAM T WAVE INVERSION [None]
  - ELECTROENCEPHALOGRAM ABNORMAL [None]
  - ELECTROMYOGRAM ABNORMAL [None]
  - HYPOCALCAEMIA [None]
  - HYPOKALAEMIA [None]
  - HYPOTONIA [None]
  - LETHARGY [None]
  - MUSCLE CONTRACTIONS INVOLUNTARY [None]
  - MUSCLE SPASMS [None]
  - MUSCLE TIGHTNESS [None]
  - MUSCULAR WEAKNESS [None]
  - NEUROPATHY PERIPHERAL [None]
  - NEUROTOXICITY [None]
  - PARAESTHESIA [None]
  - PARALYSIS FLACCID [None]
  - RESPIRATORY DISTRESS [None]
  - VENTRICULAR EXTRASYSTOLES [None]
